FAERS Safety Report 17024898 (Version 2)
Quarter: 2019Q4

REPORT INFORMATION
  Report Type: Spontaneous
  Country: BR (occurrence: BR)
  Receive Date: 20191113
  Receipt Date: 20191118
  Transmission Date: 20200122
  Serious: Yes (Other)
  Sender: FDA-Public Use
  Company Number: BR-B.I. PHARMACEUTICALS,INC./RIDGEFIELD-2019-BI-112926

PATIENT
  Sex: Male
  Weight: 79 kg

DRUGS (2)
  1. STRIVERDI RESPIMAT [Suspect]
     Active Substance: OLODATEROL HYDROCHLORIDE
     Dosage: AROUND 10 DAYS AGO
     Route: 048
  2. STRIVERDI RESPIMAT [Suspect]
     Active Substance: OLODATEROL HYDROCHLORIDE
     Indication: EMPHYSEMA
     Dosage: 6OR7 YEARS AGO
     Route: 048

REACTIONS (3)
  - Glaucoma [Unknown]
  - Cough [Unknown]
  - Oropharyngeal discomfort [Unknown]
